FAERS Safety Report 16941178 (Version 1)
Quarter: 2019Q4

REPORT INFORMATION
  Report Type: Spontaneous
  Country: CA (occurrence: CA)
  Receive Date: 20191021
  Receipt Date: 20191021
  Transmission Date: 20200122
  Serious: Yes (Other)
  Sender: FDA-Public Use
  Company Number: CA-TEVA-734457USA

PATIENT
  Age: 34 Year
  Sex: Female

DRUGS (2)
  1. PLAN B [Suspect]
     Active Substance: LEVONORGESTREL
     Route: 048
     Dates: start: 201612, end: 201612
  2. PLAN B [Suspect]
     Active Substance: LEVONORGESTREL
     Dosage: UNKNOWN DATE
     Route: 048

REACTIONS (2)
  - Pregnancy after post coital contraception [Unknown]
  - Maternal exposure during pregnancy [Unknown]
